FAERS Safety Report 4627413-7 (Version None)
Quarter: 2005Q1

REPORT INFORMATION
  Report Type: 
  Country: None (occurrence: None)
  Receive Date: 20050331
  Receipt Date: 20050321
  Transmission Date: 20050727
  Serious: Yes (Hospitalization)
  Sender: FDA-Public Use
  Company Number: US014941

PATIENT
  Age: 33 Year
  Sex: Male

DRUGS (2)
  1. GABITRIL [Suspect]
     Indication: RESTLESSNESS
     Dosage: 2 MG QHS ORAL
     Route: 048
  2. PROZAC [Concomitant]

REACTIONS (2)
  - CONVULSION [None]
  - DRUG ABUSER [None]
